FAERS Safety Report 11720038 (Version 1)
Quarter: 2015Q4

REPORT INFORMATION
  Report Type: Report from Study
  Country: IN (occurrence: IN)
  Receive Date: 20151110
  Receipt Date: 20151110
  Transmission Date: 20160304
  Serious: Yes (Hospitalization, Other)
  Sender: FDA-Public Use
  Company Number: IN-ROCHE-1656430

PATIENT
  Age: 50 Year
  Sex: Male

DRUGS (6)
  1. COPEGUS [Suspect]
     Active Substance: RIBAVIRIN
     Dosage: 5 TABLETS DAILY (2 TABLETS IN MORNING, 1 TABLET IN AFTERNOON AND 2 TABLETS IN EVENING)
     Route: 048
  2. EXXURA [Suspect]
     Active Substance: PEGINTERFERON ALFA-2A
     Route: 065
     Dates: start: 20150929
  3. EXXURA [Suspect]
     Active Substance: PEGINTERFERON ALFA-2A
     Dosage: DOSE REDUCED
     Route: 058
  4. COPEGUS [Suspect]
     Active Substance: RIBAVIRIN
     Route: 065
     Dates: start: 20150929
  5. EXXURA [Suspect]
     Active Substance: PEGINTERFERON ALFA-2A
     Indication: HEPATITIS C
     Route: 058
     Dates: start: 20150731
  6. COPEGUS [Suspect]
     Active Substance: RIBAVIRIN
     Indication: HEPATITIS C
     Dosage: 4 TABLETS DAILY
     Route: 048
     Dates: start: 20150731

REACTIONS (4)
  - Hepatic haemorrhage [Recovered/Resolved]
  - Platelet count decreased [Recovered/Resolved]
  - Bone pain [Recovered/Resolved]
  - White blood cell count decreased [Recovered/Resolved]
